FAERS Safety Report 18354704 (Version 1)
Quarter: 2020Q4

REPORT INFORMATION
  Report Type: Report from Study
  Country: CA (occurrence: CA)
  Receive Date: 20201007
  Receipt Date: 20201007
  Transmission Date: 20210114
  Serious: Yes (Other)
  Sender: FDA-Public Use
  Company Number: PHHY2017CA106023

PATIENT
  Sex: Female

DRUGS (1)
  1. GILENYA [Suspect]
     Active Substance: FINGOLIMOD HYDROCHLORIDE
     Indication: PRODUCT USED FOR UNKNOWN INDICATION
     Dosage: UNK
     Route: 048
     Dates: start: 20151203, end: 20200806

REACTIONS (6)
  - Speech disorder [Unknown]
  - Disease recurrence [Unknown]
  - Rebound effect [Unknown]
  - Muscle tightness [Unknown]
  - Muscular weakness [Unknown]
  - Bladder discomfort [Unknown]

NARRATIVE: CASE EVENT DATE: 2017
